FAERS Safety Report 24202311 (Version 2)
Quarter: 2024Q3

REPORT INFORMATION
  Report Type: Spontaneous
  Country: TW (occurrence: TW)
  Receive Date: 20240812
  Receipt Date: 20240823
  Transmission Date: 20241016
  Serious: Yes (Death, Life-Threatening, Hospitalization, Other)
  Sender: ALKEM
  Company Number: None

PATIENT
  Age: 82 Year
  Sex: Female

DRUGS (15)
  1. FAMOTIDINE [Suspect]
     Active Substance: FAMOTIDINE
     Indication: Abdominal discomfort
     Dosage: UNK
     Route: 065
  2. QUETIAPINE FUMARATE [Suspect]
     Active Substance: QUETIAPINE FUMARATE
     Indication: Mental disorder
     Dosage: UNK
     Route: 065
  3. METHYLPREDNISOLONE [Suspect]
     Active Substance: METHYLPREDNISOLONE
     Indication: Stevens-Johnson syndrome
     Dosage: 40 MILLIGRAM, TID
     Route: 042
  4. METHYLPREDNISOLONE [Suspect]
     Active Substance: METHYLPREDNISOLONE
     Dosage: 40 MILLIGRAM, BID
     Route: 042
  5. ACETAMINOPHEN [Concomitant]
     Active Substance: ACETAMINOPHEN
     Indication: Pain prophylaxis
     Dosage: UNK
     Route: 065
  6. AMLODIPINE [Concomitant]
     Active Substance: AMLODIPINE BESYLATE
     Indication: Hypertension
     Dosage: UNK
     Route: 065
  7. BACITRACIN [Concomitant]
     Active Substance: BACITRACIN
     Indication: Antibiotic therapy
     Dosage: UNK
     Route: 065
  8. FOLIC ACID [Concomitant]
     Active Substance: FOLIC ACID
     Indication: Anaemia
     Dosage: UNK
     Route: 065
  9. FUROSEMIDE [Concomitant]
     Active Substance: FUROSEMIDE
     Indication: Generalised oedema
     Dosage: UNK
     Route: 065
  10. FUSIDIC ACID [Concomitant]
     Active Substance: FUSIDIC ACID
     Indication: Blister
     Dosage: UNK
     Route: 065
  11. NEOMYCIN [Concomitant]
     Active Substance: NEOMYCIN
     Indication: Antibiotic therapy
     Dosage: UNK
     Route: 065
  12. POLYMYXIN B [Concomitant]
     Active Substance: POLYMYXIN B
     Indication: Antibiotic therapy
     Dosage: UNK
     Route: 065
  13. SILVER SULFADIAZINE [Concomitant]
     Active Substance: SILVER SULFADIAZINE
     Indication: Decubitus ulcer
     Dosage: UNK
     Route: 065
  14. SODIUM BICARBONATE [Concomitant]
     Active Substance: SODIUM BICARBONATE
     Indication: Chronic kidney disease
     Dosage: UNK
     Route: 065
  15. ACETAMINOPHEN\TRAMADOL [Concomitant]
     Active Substance: ACETAMINOPHEN\TRAMADOL
     Indication: Pain
     Dosage: UNK
     Route: 065

REACTIONS (5)
  - Bacteroides infection [Fatal]
  - Pseudomonas infection [Fatal]
  - SJS-TEN overlap [Fatal]
  - Beta haemolytic streptococcal infection [Fatal]
  - Proteus infection [Fatal]
